FAERS Safety Report 8721468 (Version 3)
Quarter: 2012Q4

REPORT INFORMATION
  Report Type: Report from Study
  Country: DE (occurrence: DE)
  Receive Date: 20120813
  Receipt Date: 20121030
  Transmission Date: 20130627
  Serious: Yes (Hospitalization)
  Sender: FDA-Public Use
  Company Number: DE-ROCHE-1039775

PATIENT
  Age: 67 Year
  Sex: Female
  Weight: 57 kg

DRUGS (3)
  1. VEMURAFENIB [Suspect]
     Indication: MALIGNANT MELANOMA
     Dosage: last dose prior to the SAE was on 10/feb/2012
     Route: 048
     Dates: start: 20120113, end: 20120306
  2. VEMURAFENIB [Suspect]
     Route: 048
     Dates: start: 20120310
  3. VEMURAFENIB [Suspect]
     Route: 048
     Dates: start: 20120321

REACTIONS (2)
  - Vomiting [Recovered/Resolved]
  - Nausea [Recovered/Resolved]
